FAERS Safety Report 15941711 (Version 1)
Quarter: 2019Q1

REPORT INFORMATION
  Report Type: Report from Study
  Country: CA (occurrence: CA)
  Receive Date: 20190208
  Receipt Date: 20190208
  Transmission Date: 20190417
  Serious: Yes (Other)
  Sender: FDA-Public Use
  Company Number: CA-TEVA-2019-CA-1007891

PATIENT
  Age: 7 Year
  Sex: Male

DRUGS (22)
  1. ILARIS [Suspect]
     Active Substance: CANAKINUMAB
     Route: 058
  2. ILARIS [Suspect]
     Active Substance: CANAKINUMAB
     Route: 058
  3. ILARIS [Suspect]
     Active Substance: CANAKINUMAB
     Route: 058
  4. ILARIS [Suspect]
     Active Substance: CANAKINUMAB
     Route: 058
  5. ILARIS [Suspect]
     Active Substance: CANAKINUMAB
     Route: 058
  6. ILARIS [Suspect]
     Active Substance: CANAKINUMAB
     Route: 058
  7. ILARIS [Suspect]
     Active Substance: CANAKINUMAB
     Route: 058
  8. ILARIS [Suspect]
     Active Substance: CANAKINUMAB
     Route: 058
  9. ILARIS [Suspect]
     Active Substance: CANAKINUMAB
     Route: 058
  10. ILARIS [Suspect]
     Active Substance: CANAKINUMAB
     Route: 058
  11. INDOMETHACIN. [Concomitant]
     Active Substance: INDOMETHACIN
     Indication: PRODUCT USED FOR UNKNOWN INDICATION
     Dosage: 50 MILLIGRAM DAILY;
     Route: 065
  12. MELOXICAM. [Concomitant]
     Active Substance: MELOXICAM
     Indication: PRODUCT USED FOR UNKNOWN INDICATION
     Route: 065
  13. ILARIS [Suspect]
     Active Substance: CANAKINUMAB
     Route: 058
  14. ILARIS [Suspect]
     Active Substance: CANAKINUMAB
     Route: 058
  15. METHOTREXATE. [Suspect]
     Active Substance: METHOTREXATE
     Indication: PRODUCT USED FOR UNKNOWN INDICATION
     Route: 065
  16. FOLIC ACID. [Suspect]
     Active Substance: FOLIC ACID
     Indication: PRODUCT USED FOR UNKNOWN INDICATION
     Route: 065
  17. ILARIS [Suspect]
     Active Substance: CANAKINUMAB
     Route: 058
  18. ILARIS [Suspect]
     Active Substance: CANAKINUMAB
     Indication: STILL^S DISEASE
     Route: 058
  19. ILARIS [Suspect]
     Active Substance: CANAKINUMAB
     Route: 058
  20. ILARIS [Suspect]
     Active Substance: CANAKINUMAB
     Route: 065
  21. ILARIS [Suspect]
     Active Substance: CANAKINUMAB
     Route: 058
  22. ILARIS [Suspect]
     Active Substance: CANAKINUMAB
     Route: 058

REACTIONS (14)
  - Inflammation [Not Recovered/Not Resolved]
  - Joint swelling [Not Recovered/Not Resolved]
  - Juvenile idiopathic arthritis [Not Recovered/Not Resolved]
  - Fatigue [Not Recovered/Not Resolved]
  - Arthralgia [Not Recovered/Not Resolved]
  - Pneumonia [Not Recovered/Not Resolved]
  - Rash [Not Recovered/Not Resolved]
  - Oropharyngeal pain [Not Recovered/Not Resolved]
  - Rhinorrhoea [Not Recovered/Not Resolved]
  - Blood pressure decreased [Not Recovered/Not Resolved]
  - Pain in extremity [Not Recovered/Not Resolved]
  - Cough [Not Recovered/Not Resolved]
  - Drug ineffective [Not Recovered/Not Resolved]
  - Upper respiratory tract infection [Not Recovered/Not Resolved]
